FAERS Safety Report 11813487 (Version 1)
Quarter: 2015Q4

REPORT INFORMATION
  Report Type: Spontaneous
  Country: AT (occurrence: AT)
  Receive Date: 20151209
  Receipt Date: 20151209
  Transmission Date: 20160305
  Serious: Yes (Other)
  Sender: FDA-Public Use
  Company Number: PHHY2015AT158215

PATIENT
  Age: 69 Year
  Sex: Male

DRUGS (1)
  1. TRILEPTAL [Suspect]
     Active Substance: OXCARBAZEPINE
     Indication: TRIGEMINAL NEURALGIA
     Dosage: 600 MG, QD
     Route: 048

REACTIONS (2)
  - Porphyrins urine increased [Unknown]
  - Porphyria non-acute [Unknown]

NARRATIVE: CASE EVENT DATE: 201503
